FAERS Safety Report 12242545 (Version 1)
Quarter: 2016Q2

REPORT INFORMATION
  Report Type: Spontaneous
  Country: BG (occurrence: BG)
  Receive Date: 20160406
  Receipt Date: 20160406
  Transmission Date: 20160815
  Serious: Yes (Hospitalization)
  Sender: FDA-Public Use
  Company Number: BG-ASTRAZENECA-2016SE34996

PATIENT
  Age: 58 Year
  Sex: Male

DRUGS (7)
  1. ZOFENOPRIL [Concomitant]
     Active Substance: ZOFENOPRIL
  2. TORASEMIDE [Concomitant]
     Active Substance: TORSEMIDE
  3. RAMIPRIL. [Concomitant]
     Active Substance: RAMIPRIL
     Dates: start: 201509
  4. ROSUVASTATIN. [Concomitant]
     Active Substance: ROSUVASTATIN
  5. BETALOC ZOK [Concomitant]
     Active Substance: METOPROLOL SUCCINATE
     Dates: start: 201509
  6. BRILIQUE [Suspect]
     Active Substance: TICAGRELOR
     Indication: ACUTE CORONARY SYNDROME
     Route: 048
  7. ACETYLSALICYLIC ACID [Concomitant]
     Active Substance: ASPIRIN
     Indication: ACUTE CORONARY SYNDROME
     Dates: start: 201509

REACTIONS (6)
  - Pain in extremity [Unknown]
  - Oedema peripheral [Unknown]
  - Myocardial infarction [Unknown]
  - Post procedural haematoma [Unknown]
  - Haemoglobin decreased [Unknown]
  - Extravasation blood [Unknown]

NARRATIVE: CASE EVENT DATE: 2016
